FAERS Safety Report 19271454 (Version 1)
Quarter: 2021Q2

REPORT INFORMATION
  Report Type: Spontaneous
  Country: TR (occurrence: TR)
  Receive Date: 20210519
  Receipt Date: 20210519
  Transmission Date: 20210717
  Serious: No
  Sender: FDA-Public Use
  Company Number: TR-LUPIN PHARMACEUTICALS INC.-2021-07123

PATIENT
  Age: 2 Decade
  Sex: Female

DRUGS (3)
  1. FLUOXETINE [Suspect]
     Active Substance: FLUOXETINE HYDROCHLORIDE
     Indication: MAJOR DEPRESSION
     Dosage: UNK, (INITIAL DOSAGE NOT STATED; LATER, DOSE WAS INCREASED TO 80MG)
     Route: 065
  2. FLUOXETINE [Suspect]
     Active Substance: FLUOXETINE HYDROCHLORIDE
     Indication: TRICHOTILLOMANIA
     Dosage: 80 MILLIGRAM, QD
     Route: 065
  3. N?ACETYLCYSTEINE [Suspect]
     Active Substance: ACETYLCYSTEINE
     Indication: TRICHOTILLOMANIA
     Dosage: 1200 MILLIGRAM, QD
     Route: 065

REACTIONS (1)
  - Off label use [Unknown]
